FAERS Safety Report 6377537-1 (Version None)
Quarter: 2009Q3

REPORT INFORMATION
  Report Type: 
  Country: None (occurrence: None)
  Receive Date: 20090925
  Receipt Date: 20090918
  Transmission Date: 20100115
  Serious: Yes (Disabling)
  Sender: FDA-Public Use
  Company Number: SI-MERCK-0909USA02416

PATIENT
  Sex: Female
  Weight: 72 kg

DRUGS (5)
  1. VYTORIN [Suspect]
     Indication: HYPERCHOLESTEROLAEMIA
     Route: 048
     Dates: start: 20090408, end: 20090415
  2. PLAVIX [Concomitant]
     Route: 065
     Dates: start: 20080101
  3. LACIPIL [Concomitant]
     Route: 065
     Dates: start: 20080101
  4. ASPIRIN [Concomitant]
     Route: 065
     Dates: start: 20050101
  5. BISOPROLOL FUMARATE [Concomitant]
     Indication: MYOCARDIAL INFARCTION
     Route: 065
     Dates: start: 20050101

REACTIONS (6)
  - ABDOMINAL PAIN [None]
  - ASTHENIA [None]
  - FLATULENCE [None]
  - GASTROINTESTINAL DISORDER [None]
  - NAUSEA [None]
  - TENSION [None]
